FAERS Safety Report 4575044-X (Version None)
Quarter: 2005Q1

REPORT INFORMATION
  Report Type: 
  Country: None (occurrence: None)
  Receive Date: 20050208
  Receipt Date: 20050126
  Transmission Date: 20050727
  Serious: Yes (Other)
  Sender: FDA-Public Use
  Company Number: JP-JNJFOC-20041200719

PATIENT
  Age: 74 Year
  Sex: Female

DRUGS (15)
  1. ITRIZOLE [Suspect]
     Indication: ONYCHOMYCOSIS
     Route: 049
  2. VERAPAMIL HYDROCHLORIDE [Concomitant]
     Indication: DIABETES MELLITUS
     Route: 049
  3. VERAPAMIL HYDROCHLORIDE [Concomitant]
     Indication: ANGINA PECTORIS
     Route: 049
  4. ISOSORBIDE DINITRATE [Concomitant]
     Indication: DIABETES MELLITUS
     Route: 049
  5. ISOSORBIDE DINITRATE [Concomitant]
     Indication: ANGINA PECTORIS
     Route: 049
  6. NICORANDIL [Concomitant]
     Indication: ANGINA PECTORIS
     Route: 049
  7. NICORANDIL [Concomitant]
     Indication: DIABETES MELLITUS
     Route: 049
  8. BUMETANIDE [Concomitant]
     Indication: ANGINA PECTORIS
     Route: 049
  9. BUMETANIDE [Concomitant]
     Indication: DIABETES MELLITUS
     Route: 049
  10. PIOGLITAZONE HYDROCHLORIDE [Concomitant]
     Indication: ANGINA PECTORIS
     Route: 049
  11. PIOGLITAZONE HYDROCHLORIDE [Concomitant]
     Indication: DIABETES MELLITUS
     Route: 049
  12. ETODOLAC [Concomitant]
     Route: 049
  13. REBAMIPIDE [Concomitant]
     Route: 049
  14. MECOBALAMIN [Concomitant]
     Route: 049
  15. ETIZOLAM [Concomitant]
     Route: 049

REACTIONS (1)
  - DEAFNESS [None]
